FAERS Safety Report 11451904 (Version 1)
Quarter: 2015Q3

REPORT INFORMATION
  Report Type: Other
  Country: DE (occurrence: DE)
  Receive Date: 20150903
  Receipt Date: 20150903
  Transmission Date: 20151125
  Serious: Yes (Life-Threatening)
  Sender: FDA-Public Use
  Company Number: DE-MYLANLABS-2015M1028861

PATIENT

DRUGS (15)
  1. LEUCOVORIN. [Suspect]
     Active Substance: LEUCOVORIN
     Dosage: UNK
     Dates: start: 201410, end: 201412
  2. LEUCOVORIN. [Suspect]
     Active Substance: LEUCOVORIN
     Dosage: UNK
     Dates: start: 201501
  3. OXALIPLATIN. [Suspect]
     Active Substance: OXALIPLATIN
     Dosage: UNK
     Dates: start: 200907, end: 200910
  4. 5-FU [Suspect]
     Active Substance: FLUOROURACIL
     Dosage: UNK
     Dates: start: 200907, end: 200910
  5. 5-FU [Suspect]
     Active Substance: FLUOROURACIL
     Dosage: UNK
     Dates: start: 201410, end: 201412
  6. 5-FU [Suspect]
     Active Substance: FLUOROURACIL
     Dosage: UNK
     Dates: start: 20150114
  7. FOLFOX [Suspect]
     Active Substance: FLUOROURACIL\LEUCOVORIN CALCIUM\OXALIPLATIN
     Dosage: UNK
     Dates: start: 2010, end: 201010
  8. AVASTIN [Suspect]
     Active Substance: BEVACIZUMAB
     Dosage: UNK
     Dates: end: 201408
  9. LEUCOVORIN. [Suspect]
     Active Substance: LEUCOVORIN
     Dosage: UNK
     Dates: start: 201505, end: 201506
  10. IRINOTECAN [Suspect]
     Active Substance: IRINOTECAN
     Dosage: UNK
     Dates: start: 200907, end: 200910
  11. LEUCOVORIN. [Suspect]
     Active Substance: LEUCOVORIN
     Dosage: UNK
     Dates: start: 201502, end: 201503
  12. FOLFOX [Suspect]
     Active Substance: FLUOROURACIL\LEUCOVORIN CALCIUM\OXALIPLATIN
     Dosage: UNK
     Dates: start: 201402, end: 201408
  13. 5-FU [Suspect]
     Active Substance: FLUOROURACIL
     Dosage: UNK
     Dates: start: 201502, end: 201503
  14. 5-FU [Suspect]
     Active Substance: FLUOROURACIL
     Dosage: UNK
     Dates: start: 201505, end: 201506
  15. FOLSAEURE [Suspect]
     Active Substance: FOLIC ACID
     Dosage: UNK
     Dates: start: 200907, end: 200910

REACTIONS (1)
  - Acute lymphocytic leukaemia [Not Recovered/Not Resolved]

NARRATIVE: CASE EVENT DATE: 201507
